FAERS Safety Report 6809836-0 (Version None)
Quarter: 2010Q2

REPORT INFORMATION
  Report Type: 
  Country: None (occurrence: None)
  Receive Date: 20100630
  Receipt Date: 20100623
  Transmission Date: 20101027
  Serious: Yes (Life-Threatening, Hospitalization)
  Sender: FDA-Public Use
  Company Number: JP-WYE-H14352310

PATIENT
  Age: 65 Year
  Sex: Male

DRUGS (5)
  1. ZOSYN [Suspect]
     Indication: PNEUMONIA
     Route: 041
     Dates: start: 20100222, end: 20100227
  2. ROCEPHIN [Concomitant]
     Indication: PNEUMONIA
     Route: 041
     Dates: start: 20100216, end: 20100222
  3. CEFZON [Concomitant]
     Indication: PNEUMONIA
     Dosage: UNKNOWN
     Route: 048
     Dates: end: 20100215
  4. TAKEPRON [Concomitant]
     Route: 048
  5. VASOLAN [Concomitant]
     Indication: ARRHYTHMIA
     Route: 048

REACTIONS (4)
  - CONDITION AGGRAVATED [None]
  - INTERSTITIAL LUNG DISEASE [None]
  - PNEUMONIA [None]
  - RESPIRATORY FAILURE [None]
